FAERS Safety Report 17192580 (Version 1)
Quarter: 2019Q4

REPORT INFORMATION
  Report Type: Spontaneous
  Country: US (occurrence: US)
  Receive Date: 20191223
  Receipt Date: 20191223
  Transmission Date: 20200122
  Serious: Yes (Hospitalization)
  Sender: FDA-Public Use
  Company Number: US-TAKEDA-2019TUS071758

PATIENT
  Age: 78 Year
  Sex: Female
  Weight: 45.81 kg

DRUGS (2)
  1. COLCRYS [Suspect]
     Active Substance: COLCHICINE
     Indication: GOUT
     Dosage: 0.6 MILLIGRAM, QD
     Route: 065
  2. COLCRYS [Suspect]
     Active Substance: COLCHICINE
     Dosage: UNK
     Route: 065

REACTIONS (2)
  - Gout [Recovered/Resolved]
  - Product dose omission [Unknown]
